FAERS Safety Report 17119487 (Version 2)
Quarter: 2019Q4

REPORT INFORMATION
  Report Type: Spontaneous
  Country: JP (occurrence: JP)
  Receive Date: 20191206
  Receipt Date: 20191216
  Transmission Date: 20200122
  Serious: Yes (Life-Threatening, Hospitalization, Other)
  Sender: FDA-Public Use
  Company Number: JP-ACCORD-164076

PATIENT
  Age: 43 Year
  Sex: Female
  Weight: 81 kg

DRUGS (5)
  1. CAFFEINE/CAFFEINE CITRATE [Suspect]
     Active Substance: CAFFEINE CITRATE
  2. RISPERIDONE. [Concomitant]
     Active Substance: RISPERIDONE
     Dosage: (STRENGTH-1 MG)48 MG (0.6 MG/KG)
     Route: 048
  3. LAMOTRIGINE. [Concomitant]
     Active Substance: LAMOTRIGINE
     Dosage: (STRENGTH-100 MG )400 MG (5 MG/KG)
     Route: 048
  4. AMITRIPTYLINE [Suspect]
     Active Substance: AMITRIPTYLINE
     Dosage: (STRENGTH-25 MG)2500 MG (31 MG/KG)
     Route: 048
  5. CAFFEINE/IBUPROFEN [Suspect]
     Active Substance: CAFFEINE\IBUPROFEN
     Dosage: (40 MG /75 MG)IBUPROFEN: 28,800 MG (356 MG/KG), CAFFEINE 15,360 MG (190 MG/KG)
     Route: 048

REACTIONS (18)
  - Rhabdomyolysis [Recovered/Resolved]
  - Renal tubular acidosis [Recovered/Resolved]
  - Toxicity to various agents [Recovered/Resolved]
  - Tremor [Recovered/Resolved]
  - Hypokalaemia [Recovered/Resolved]
  - Cardiac arrest [Recovered/Resolved]
  - Suicide attempt [Unknown]
  - Paralysis [Recovered/Resolved]
  - Torsade de pointes [Recovered/Resolved]
  - Ventricular arrhythmia [Recovered/Resolved]
  - Shock [Recovered/Resolved]
  - Metabolic acidosis [Recovered/Resolved]
  - Loss of consciousness [Recovered/Resolved]
  - Intentional overdose [Unknown]
  - Mental status changes [Recovered/Resolved]
  - Hyperlactacidaemia [Recovered/Resolved]
  - Tachycardia [Recovered/Resolved]
  - Acute kidney injury [Recovered/Resolved]
